FAERS Safety Report 25236404 (Version 1)
Quarter: 2025Q2

REPORT INFORMATION
  Report Type: Spontaneous
  Country: US (occurrence: US)
  Receive Date: 20250424
  Receipt Date: 20250424
  Transmission Date: 20250716
  Serious: No
  Sender: BAYER HEALTHCARE LLC
  Company Number: US-BAYER-2025A053802

PATIENT
  Age: 73 Year
  Sex: Female

DRUGS (3)
  1. MIRALAX [Suspect]
     Active Substance: POLYETHYLENE GLYCOL 3350
     Indication: Prophylaxis
     Dosage: 1 DF, QD
     Route: 048
     Dates: start: 2008
  2. PROMETHAZINE [Concomitant]
     Active Substance: PROMETHAZINE HYDROCHLORIDE
     Indication: Prophylaxis
     Dosage: 1 DF, QD 25 MG
     Route: 048
     Dates: start: 2024
  3. HYDROMORPHONE [Concomitant]
     Active Substance: HYDROMORPHONE
     Indication: Pain
     Route: 048
     Dates: start: 2023

REACTIONS (3)
  - Product use issue [Recovering/Resolving]
  - Product physical issue [None]
  - Product use in unapproved indication [None]

NARRATIVE: CASE EVENT DATE: 20080101
